FAERS Safety Report 11133463 (Version 1)
Quarter: 2015Q2

REPORT INFORMATION
  Report Type: Report from Study
  Country: US (occurrence: US)
  Receive Date: 20150522
  Receipt Date: 20150522
  Transmission Date: 20150821
  Serious: Yes (Life-Threatening, Other)
  Sender: FDA-Public Use
  Company Number: US-009507513-1505USA005841

PATIENT

DRUGS (4)
  1. TEMODAR [Suspect]
     Active Substance: TEMOZOLOMIDE
     Dosage: CYCLE 3, 200 MG/M2 ADMINISTERED DAILY FOR 5 DAYS IN A 28-DAY CYCLE.
     Route: 048
  2. TEMODAR [Suspect]
     Active Substance: TEMOZOLOMIDE
     Indication: MALIGNANT GLIOMA
     Dosage: CYCLE 1, 200 MG/M2 PER DAY FOR 5 DAYS ON DAYS 4-8
     Route: 048
  3. GLIADEL [Concomitant]
     Active Substance: CARMUSTINE
     Indication: MALIGNANT GLIOMA
  4. TEMODAR [Suspect]
     Active Substance: TEMOZOLOMIDE
     Dosage: CYCLE 2, 75 MG/M2 DAILY WAS GIVEN ON WEEKDAYS WITH RT
     Route: 048

REACTIONS (1)
  - Thrombocytopenia [Unknown]
